FAERS Safety Report 13162913 (Version 11)
Quarter: 2019Q3

REPORT INFORMATION
  Report Type: Spontaneous
  Country: US (occurrence: US)
  Receive Date: 20170130
  Receipt Date: 20190903
  Transmission Date: 20191004
  Serious: No
  Sender: FDA-Public Use
  Company Number: US-PFIZER INC-2017034205

PATIENT
  Age: 66 Year
  Sex: Female
  Weight: 54 kg

DRUGS (12)
  1. LYRICA [Suspect]
     Active Substance: PREGABALIN
     Indication: BACK PAIN
  2. CROMOLYN [Concomitant]
     Active Substance: CROMOLYN
     Indication: PROPHYLAXIS
     Dosage: UNK
  3. ALLEGRA [Concomitant]
     Active Substance: FEXOFENADINE HYDROCHLORIDE
     Dosage: UNK
  4. PERCOCET [Suspect]
     Active Substance: ACETAMINOPHEN\OXYCODONE HYDROCHLORIDE
     Dosage: 5 MG, UNK (5 MG FIVE TIMES A DAY )
  5. TRAMADOL. [Concomitant]
     Active Substance: TRAMADOL
     Indication: BURNING SENSATION
     Dosage: 50 MG, UNK(50 MG ONE TABLET FIVE TIMES A DAY)
     Dates: start: 201906
  6. LYRICA [Suspect]
     Active Substance: PREGABALIN
     Indication: COMPLEX REGIONAL PAIN SYNDROME
     Dosage: 50 MG, THRICE A DAY
     Route: 048
     Dates: start: 201206
  7. LYRICA [Suspect]
     Active Substance: PREGABALIN
     Indication: BURNING SENSATION
     Dosage: UNK
  8. PERCOCET [Suspect]
     Active Substance: ACETAMINOPHEN\OXYCODONE HYDROCHLORIDE
     Indication: BREAKTHROUGH PAIN
     Dosage: UNK, AS NEEDED (OXYCODONE HYDROCHLORIDE: 10 MG]/[PARACETAMOL: 325 MG], TID)
  9. FAMOTIDINE. [Concomitant]
     Active Substance: FAMOTIDINE
     Dosage: UNK
  10. TRAMADOL. [Concomitant]
     Active Substance: TRAMADOL
     Indication: ARTHRITIS
  11. OXYCONTIN [Suspect]
     Active Substance: OXYCODONE HYDROCHLORIDE
     Dosage: 10 MG, 2X/DAY
  12. LEVOTHYROXINE. [Concomitant]
     Active Substance: LEVOTHYROXINE
     Dosage: UNK

REACTIONS (12)
  - Disturbance in attention [Unknown]
  - Gastric disorder [Unknown]
  - Expired product administered [Unknown]
  - Cardiac disorder [Unknown]
  - Constipation [Unknown]
  - Dry mouth [Unknown]
  - Product quality issue [Unknown]
  - Fatigue [Unknown]
  - Injury [Unknown]
  - Drug withdrawal syndrome [Unknown]
  - Headache [Unknown]
  - Abdominal pain upper [Unknown]
